FAERS Safety Report 6462555-5 (Version None)
Quarter: 2009Q4

REPORT INFORMATION
  Report Type: 
  Country: None (occurrence: None)
  Receive Date: 20091130
  Receipt Date: 20091125
  Transmission Date: 20100525
  Serious: Yes (Death)
  Sender: FDA-Public Use
  Company Number: PHHY2009MY49750

PATIENT
  Age: 45 Year
  Sex: Female

DRUGS (2)
  1. GLEEVEC [Suspect]
     Indication: CHRONIC MYELOID LEUKAEMIA
     Route: 048
  2. HYDROXYUREA [Suspect]

REACTIONS (2)
  - CHRONIC MYELOID LEUKAEMIA [None]
  - SEPSIS [None]
